FAERS Safety Report 18433327 (Version 1)
Quarter: 2020Q4

REPORT INFORMATION
  Report Type: Report from Study
  Country: US (occurrence: US)
  Receive Date: 20201027
  Receipt Date: 20201027
  Transmission Date: 20210114
  Serious: Yes (Death)
  Sender: FDA-Public Use
  Company Number: US-ASTRAZENECA-2020SF38943

PATIENT
  Age: 24790 Day
  Sex: Male
  Weight: 75.8 kg

DRUGS (16)
  1. ELIQUIS [Concomitant]
     Active Substance: APIXABAN
  2. FLONASE [Concomitant]
     Active Substance: FLUTICASONE PROPIONATE
  3. INCRUSE ELLIPTA [Concomitant]
     Active Substance: UMECLIDINIUM BROMIDE
  4. MONTELUKAST [Concomitant]
     Active Substance: MONTELUKAST SODIUM
  5. REMERON [Concomitant]
     Active Substance: MIRTAZAPINE
  6. TYLENOL [Concomitant]
     Active Substance: ACETAMINOPHEN
  7. CALQUENCE [Suspect]
     Active Substance: ACALABRUTINIB
     Indication: CHRONIC LYMPHOCYTIC LEUKAEMIA
     Route: 048
     Dates: start: 20200810, end: 20201002
  8. MELATONIN [Concomitant]
     Active Substance: MELATONIN
  9. AMIODARONE [Concomitant]
     Active Substance: AMIODARONE
  10. ALLOPURINOL. [Concomitant]
     Active Substance: ALLOPURINOL
  11. GABAPENTIN. [Concomitant]
     Active Substance: GABAPENTIN
  12. PROBIOTIC [Concomitant]
     Active Substance: PROBIOTICS NOS
  13. ROBITUSSIN COUGH + CHEST [Concomitant]
  14. CARVEDILOL. [Concomitant]
     Active Substance: CARVEDILOL
  15. LANTUS SOLOSTAR [Concomitant]
     Active Substance: INSULIN GLARGINE
  16. PROTONIX [Concomitant]
     Active Substance: PANTOPRAZOLE SODIUM

REACTIONS (1)
  - Death [Fatal]

NARRATIVE: CASE EVENT DATE: 20201002
